FAERS Safety Report 6409216-6 (Version None)
Quarter: 2009Q4

REPORT INFORMATION
  Report Type: 
  Country: None (occurrence: None)
  Receive Date: 20091021
  Receipt Date: 20091016
  Transmission Date: 20100525
  Serious: Yes (Life-Threatening)
  Sender: FDA-Public Use
  Company Number: DE-CELGENEUS-062-21880-09101344

PATIENT
  Sex: Male
  Weight: 95 kg

DRUGS (1)
  1. REVLIMID [Suspect]
     Indication: HODGKIN'S DISEASE
     Route: 048
     Dates: start: 20091002, end: 20091008

REACTIONS (2)
  - DIARRHOEA [None]
  - LIVER FUNCTION TEST ABNORMAL [None]
